FAERS Safety Report 19924506 (Version 2)
Quarter: 2021Q4

REPORT INFORMATION
  Report Type: Report from Study
  Country: KR (occurrence: KR)
  Receive Date: 20211006
  Receipt Date: 20211216
  Transmission Date: 20220303
  Serious: Yes (Death, Hospitalization)
  Sender: FDA-Public Use
  Company Number: KR-TAKEDA-2021TUS060521

PATIENT
  Age: 76 Year
  Sex: Male
  Weight: 49 kg

DRUGS (7)
  1. BRIGATINIB [Suspect]
     Active Substance: BRIGATINIB
     Indication: Non-small cell lung cancer
     Dosage: 90 MILLIGRAM, QD
     Route: 048
     Dates: start: 20210928, end: 20210929
  2. DOXOFYLLINE [Concomitant]
     Active Substance: DOXOFYLLINE
     Indication: Chronic obstructive pulmonary disease
     Dosage: UNK, QD
     Route: 048
     Dates: start: 20210705, end: 20211015
  3. LAFUTIDINE [Concomitant]
     Active Substance: LAFUTIDINE
     Indication: Gastric ulcer
     Dosage: UNK, QD
     Route: 048
     Dates: start: 20210705, end: 20211015
  4. FENTADUR [Concomitant]
     Indication: Pain
     Dosage: 2.75 MILLIGRAM, QD
     Route: 065
     Dates: start: 20210414, end: 20211015
  5. FENTORA [Concomitant]
     Active Substance: FENTANYL CITRATE
     Indication: Pain
     Dosage: UNK, QD
     Route: 048
     Dates: start: 20210414, end: 20211015
  6. TACOPEN [Concomitant]
     Indication: Pain
     Dosage: UNK, QD
     Route: 048
     Dates: start: 20210830, end: 20211015
  7. VIMOVO [Concomitant]
     Active Substance: ESOMEPRAZOLE MAGNESIUM\NAPROXEN
     Indication: Pain
     Dosage: UNK, QD
     Route: 048
     Dates: start: 20210927, end: 20211015

REACTIONS (1)
  - Lung disorder [Fatal]

NARRATIVE: CASE EVENT DATE: 20210929
